FAERS Safety Report 5150725-8 (Version None)
Quarter: 2006Q4

REPORT INFORMATION
  Report Type: 
  Country: None (occurrence: None)
  Receive Date: 20061114
  Receipt Date: 20061107
  Transmission Date: 20070319
  Serious: Yes (Other)
  Sender: FDA-Public Use
  Company Number: US-SANOFI-SYNTHELABO-A03200606719

PATIENT
  Sex: Female

DRUGS (11)
  1. SYNTHROID [Concomitant]
     Dosage: UNK
     Route: 048
  2. PREVACID [Concomitant]
     Dosage: UNK
     Route: 048
  3. VYTORIN [Concomitant]
     Dosage: UNK
     Route: 048
  4. WELLBUTRIN [Concomitant]
     Dosage: UNK
     Route: 048
  5. TRICOR [Concomitant]
     Dosage: UNK
     Route: 048
  6. LEXAPRO [Concomitant]
     Dosage: UNK
     Route: 048
  7. FOLTX [Concomitant]
     Dosage: UNK
     Route: 048
  8. HYDROCHLOROTHIAZIDE [Concomitant]
     Dosage: UNK
     Route: 048
  9. LISINOPRIL [Concomitant]
     Dosage: UNK
     Route: 048
  10. ATENOLOL [Concomitant]
     Dosage: UNK
     Route: 048
  11. AMBIEN [Suspect]
     Indication: INSOMNIA
     Route: 048
     Dates: start: 20040101

REACTIONS (4)
  - AMNESIA [None]
  - CRYING [None]
  - SLEEP WALKING [None]
  - TRANSIENT ISCHAEMIC ATTACK [None]
